FAERS Safety Report 16862271 (Version 3)
Quarter: 2021Q4

REPORT INFORMATION
  Report Type: Spontaneous
  Country: US (occurrence: US)
  Receive Date: 20190927
  Receipt Date: 20211220
  Transmission Date: 20220303
  Serious: No
  Sender: FDA-Public Use
  Company Number: US-VERTEX PHARMACEUTICALS-2019-009078

PATIENT
  Age: 67 Year
  Sex: Female

DRUGS (14)
  1. SYMDEKO [Suspect]
     Active Substance: IVACAFTOR\TEZACAFTOR
     Indication: Cystic fibrosis
     Dosage: (100MG TEZACAFTOR/150MG IVACAFTOR AM; 150MG IVACAFTOR PM) TWICE DAILY
     Route: 048
     Dates: start: 20190701
  2. SYMDEKO [Suspect]
     Active Substance: IVACAFTOR\TEZACAFTOR
     Dosage: RESTARTED
     Route: 048
     Dates: end: 20191230
  3. LEVALBUTEROL [Concomitant]
     Active Substance: LEVALBUTEROL
  4. SODIUM CHLORIDE [Concomitant]
     Active Substance: SODIUM CHLORIDE
     Route: 055
  5. DORNASE ALFA [Concomitant]
     Active Substance: DORNASE ALFA
  6. FLUTICASONE [Concomitant]
     Active Substance: FLUTICASONE
     Route: 055
  7. FLOVENT [Concomitant]
     Active Substance: FLUTICASONE PROPIONATE
  8. BUSPIRONE [Concomitant]
     Active Substance: BUSPIRONE HYDROCHLORIDE
  9. ZENPEP [Concomitant]
     Active Substance: PANCRELIPASE AMYLASE\PANCRELIPASE LIPASE\PANCRELIPASE PROTEASE
  10. CALCIUM\VITAMIN D [Concomitant]
     Active Substance: CALCIUM\VITAMIN D
  11. CHOLECALCIFEROL [Concomitant]
     Active Substance: CHOLECALCIFEROL
  12. LEXAPRO [Concomitant]
     Active Substance: ESCITALOPRAM OXALATE
  13. RALOXIFENE [Concomitant]
     Active Substance: RALOXIFENE
  14. MONTELUKAST [Concomitant]
     Active Substance: MONTELUKAST SODIUM

REACTIONS (2)
  - Vomiting [Recovered/Resolved]
  - Nausea [Recovered/Resolved]

NARRATIVE: CASE EVENT DATE: 20190917
